FAERS Safety Report 11647588 (Version 1)
Quarter: 2015Q4

REPORT INFORMATION
  Report Type: Spontaneous
  Country: US (occurrence: None)
  Receive Date: 20151020
  Receipt Date: 20151020
  Transmission Date: 20160304
  Serious: No
  Sender: FDA-Public Use
  Company Number: None

PATIENT
  Age: 43 Year
  Sex: Female
  Weight: 78.8 kg

DRUGS (1)
  1. BUPROPION HCL SR [Suspect]
     Active Substance: BUPROPION HYDROCHLORIDE
     Indication: DEPRESSION
     Dosage: ONE TIME DOSE
     Route: 048
     Dates: start: 200902

REACTIONS (2)
  - Crying [None]
  - Panic attack [None]

NARRATIVE: CASE EVENT DATE: 200902
